FAERS Safety Report 13277244 (Version 1)
Quarter: 2017Q1

REPORT INFORMATION
  Report Type: Spontaneous
  Country: BR (occurrence: BR)
  Receive Date: 20170228
  Receipt Date: 20170228
  Transmission Date: 20170428
  Serious: Yes (Hospitalization, Other)
  Sender: FDA-Public Use
  Company Number: BR-PFIZER INC-2016173333

PATIENT
  Age: 71 Year
  Sex: Female
  Weight: 61 kg

DRUGS (4)
  1. BENICAR [Suspect]
     Active Substance: OLMESARTAN MEDOXOMIL
     Indication: HYPERTENSION
     Dosage: 40 MG, 1X/DAY
     Route: 048
     Dates: start: 2002, end: 2008
  2. BENICAR [Suspect]
     Active Substance: OLMESARTAN MEDOXOMIL
     Dosage: 40 MG, 1X/DAY
     Route: 048
     Dates: start: 201602, end: 201602
  3. BENICAR [Suspect]
     Active Substance: OLMESARTAN MEDOXOMIL
     Dosage: 40 MG, 1X/DAY
     Route: 065
     Dates: start: 201610
  4. AMLODIPINE BESILATE [Suspect]
     Active Substance: AMLODIPINE BESYLATE
     Indication: HYPERTENSION
     Dosage: UNK UNK, DAILY
     Route: 048
     Dates: start: 2002, end: 2008

REACTIONS (11)
  - Anxiety [Recovered/Resolved]
  - Renal failure [Not Recovered/Not Resolved]
  - Dyspnoea [Unknown]
  - Dizziness [Not Recovered/Not Resolved]
  - Abdominal hernia [Not Recovered/Not Resolved]
  - Gastrointestinal pain [Not Recovered/Not Resolved]
  - Wrong drug administered [Unknown]
  - Depression [Recovered/Resolved]
  - Gastrointestinal neoplasm [Recovered/Resolved]
  - Hypertension [Recovered/Resolved]
  - Thyroid disorder [Recovered/Resolved]

NARRATIVE: CASE EVENT DATE: 2008
